FAERS Safety Report 9064658 (Version 1)
Quarter: 2013Q1

REPORT INFORMATION
  Report Type: Spontaneous
  Country: DE (occurrence: DE)
  Receive Date: 20130214
  Receipt Date: 20130214
  Transmission Date: 20140127
  Serious: Yes (Hospitalization)
  Sender: FDA-Public Use
  Company Number: DE-AMGEN-DEUSP2012068653

PATIENT
  Sex: 0

DRUGS (8)
  1. NEULASTA [Suspect]
     Indication: PRODUCT USED FOR UNKNOWN INDICATION
     Dosage: UNK
     Dates: start: 20121010
  2. ADRIAMYCIN                         /00330901/ [Concomitant]
     Dosage: 35 MG/M2, UNK
     Dates: start: 20121010
  3. BLEOMYCIN [Concomitant]
     Dosage: 10 MG/M2, UNK
     Dates: start: 20121010
  4. PROCARBAZINE [Concomitant]
     Dosage: 100 MG/M2, UNK
     Dates: start: 20121010
  5. VINCRISTIN [Concomitant]
     Dosage: 14 MG/M2, UNK
     Dates: start: 20121010
  6. ETOPOSID [Concomitant]
     Dosage: 200 MG/M2, UNK
     Dates: start: 20121010
  7. CYCLOPHOSPHAMID [Concomitant]
     Dosage: 1250 MG/M2, UNK
     Dates: start: 20121010
  8. PREDNISON [Concomitant]
     Dosage: 40 MG/M2, UNK
     Dates: start: 20121010

REACTIONS (1)
  - Spinal pain [Recovered/Resolved]
